FAERS Safety Report 6759498-6 (Version None)
Quarter: 2010Q2

REPORT INFORMATION
  Report Type: 
  Country: None (occurrence: None)
  Receive Date: 20100603
  Receipt Date: 20100520
  Transmission Date: 20101027
  Serious: Yes (Hospitalization)
  Sender: FDA-Public Use
  Company Number: 012628

PATIENT
  Sex: Female

DRUGS (4)
  1. ROTIGOTINE (ROTIGOTINE) [Suspect]
     Indication: PARKINSON'S DISEASE
     Dosage: (TRANSDERMAL)
     Route: 062
     Dates: start: 20100422
  2. CARBIDOPA AND LEVODOPA [Concomitant]
  3. AMANTADINE HYDROCHLORIDE [Concomitant]
  4. ETIZOLAM [Concomitant]

REACTIONS (2)
  - METRORRHAGIA [None]
  - URETHRAL CARUNCLE [None]
